FAERS Safety Report 10053908 (Version 1)
Quarter: 2014Q2

REPORT INFORMATION
  Report Type: Spontaneous
  Country: US (occurrence: US)
  Receive Date: 20140402
  Receipt Date: 20140402
  Transmission Date: 20141212
  Serious: No
  Sender: FDA-Public Use
  Company Number: US-AMGEN-USASP2014015515

PATIENT
  Age: 12 Year
  Sex: Female

DRUGS (2)
  1. ENBREL [Suspect]
     Indication: PSORIASIS
     Dosage: 25 MG, Q2WK
     Route: 065
     Dates: start: 20100207, end: 2013
  2. METHOTREXATE [Suspect]
     Indication: PRODUCT USED FOR UNKNOWN INDICATION
     Dosage: 17.5 MG, QWK (7 TABLETS 2.5 MG ONCE A WEEK)
     Route: 065
     Dates: start: 2013

REACTIONS (2)
  - Pruritus [Recovered/Resolved]
  - Psoriasis [Recovered/Resolved]
